FAERS Safety Report 9732562 (Version 1)
Quarter: 2013Q4

REPORT INFORMATION
  Report Type: Spontaneous
  Country: US (occurrence: None)
  Receive Date: 20131204
  Receipt Date: 20131204
  Transmission Date: 20140711
  Serious: Yes (Other)
  Sender: FDA-Public Use
  Company Number: None

PATIENT
  Age: 69 Year
  Sex: Male
  Weight: 88.45 kg

DRUGS (1)
  1. ATORVASTATIN 20MG [Suspect]
     Indication: LOW DENSITY LIPOPROTEIN INCREASED
     Route: 048
     Dates: start: 20130314, end: 20130410

REACTIONS (3)
  - Muscle spasms [None]
  - Pain in extremity [None]
  - Pain in extremity [None]
